FAERS Safety Report 6537491-6 (Version None)
Quarter: 2010Q1

REPORT INFORMATION
  Report Type: 
  Country: None (occurrence: None)
  Receive Date: 20100110
  Receipt Date: 20091223
  Transmission Date: 20100710
  Serious: Yes (Hospitalization)
  Sender: FDA-Public Use
  Company Number: 2010AL000081

PATIENT
  Age: 68 Year
  Sex: Female

DRUGS (10)
  1. MIRTAZAPINE [Suspect]
     Indication: ANXIETY
     Dosage: 30 MG; UNK; PO
     Route: 048
     Dates: start: 20091114, end: 20091209
  2. WARFARIN [Concomitant]
  3. INFLUENZA VIRUS VACCINE [Concomitant]
  4. ANASTROZOLE [Concomitant]
  5. LEVOTHYROXINE SODIUM [Concomitant]
  6. DIAZEPAM [Concomitant]
  7. TRIFLUOPERAZINE [Concomitant]
  8. PROPRANOLOL [Concomitant]
  9. CITALOPRAM HYDROBROMIDE [Concomitant]
  10. VITAMIN B COMPLEX CAP [Concomitant]

REACTIONS (3)
  - DIZZINESS [None]
  - HYPOKALAEMIA [None]
  - VISION BLURRED [None]
